FAERS Safety Report 5130406-7 (Version None)
Quarter: 2006Q4

REPORT INFORMATION
  Report Type: 
  Country: None (occurrence: None)
  Receive Date: 20061013
  Receipt Date: 20060927
  Transmission Date: 20070319
  Serious: Yes (Other)
  Sender: FDA-Public Use
  Company Number: US200609007050

PATIENT
  Age: 51 Year
  Sex: Female

DRUGS (3)
  1. FORTEO [Suspect]
     Indication: OSTEOPOROSIS
     Dates: start: 20040101, end: 20060101
  2. PREDNISONE TAB [Concomitant]
  3. FORTEO [Concomitant]

REACTIONS (4)
  - ANKLE FRACTURE [None]
  - HIP FRACTURE [None]
  - TIBIA FRACTURE [None]
  - TREATMENT NONCOMPLIANCE [None]
